FAERS Safety Report 23988323 (Version 2)
Quarter: 2024Q4

REPORT INFORMATION
  Report Type: Spontaneous
  Country: US (occurrence: US)
  Receive Date: 20240619
  Receipt Date: 20241003
  Transmission Date: 20250114
  Serious: No
  Sender: BIOLINERX
  Company Number: US-MIMS-BIOLMC-454

PATIENT
  Age: 66 Year
  Sex: Female
  Weight: 81 kg

DRUGS (2)
  1. APHEXDA [Suspect]
     Active Substance: MOTIXAFORTIDE ACETATE
     Indication: Product used for unknown indication
     Dosage: UNK, UNK
     Route: 065
     Dates: start: 20240521
  2. DEXAMETHASONE [Concomitant]
     Active Substance: DEXAMETHASONE
     Indication: Product used for unknown indication
     Dosage: 16 MILLIGRAM
     Route: 048

REACTIONS (4)
  - Blood pressure decreased [Recovered/Resolved]
  - Injection site pruritus [Recovered/Resolved]
  - Paraesthesia [Recovered/Resolved]
  - Pruritus [Recovered/Resolved]

NARRATIVE: CASE EVENT DATE: 20240521
